FAERS Safety Report 11456574 (Version 1)
Quarter: 2015Q3

REPORT INFORMATION
  Report Type: Report from Study
  Country: BE (occurrence: BE)
  Receive Date: 20150903
  Receipt Date: 20150903
  Transmission Date: 20151125
  Serious: Yes (Hospitalization)
  Sender: FDA-Public Use
  Company Number: BE-ABBVIE-15P-013-1455409-00

PATIENT
  Sex: Female

DRUGS (3)
  1. DUODOPA [Suspect]
     Active Substance: CARBIDOPA\LEVODOPA
     Dosage: AM=5ML;CD=3.4ML/HR DURING 16HRS;ED= 2ML
     Route: 050
     Dates: start: 20150417
  2. DUODOPA [Suspect]
     Active Substance: CARBIDOPA\LEVODOPA
     Indication: PARKINSON^S DISEASE
     Dosage: AM=6ML; CD=2.4ML/HR DURING 16HRS;  ED=1ML
     Route: 050
     Dates: start: 20121105, end: 20121109
  3. DUODOPA [Suspect]
     Active Substance: CARBIDOPA\LEVODOPA
     Dosage: DOSES CONTINUOUSLY MONITORED AND ADAPTED.
     Route: 050
     Dates: start: 20121109, end: 20150417

REACTIONS (2)
  - Device connection issue [Recovered/Resolved]
  - Fall [Unknown]
